FAERS Safety Report 5594138-3 (Version None)
Quarter: 2008Q1

REPORT INFORMATION
  Report Type: 
  Country: None (occurrence: None)
  Receive Date: 20080115
  Receipt Date: 20080108
  Transmission Date: 20080703
  Serious: Yes (Death, Hospitalization)
  Sender: FDA-Public Use
  Company Number: 163-C5013-08010464

PATIENT
  Age: 75 Year
  Sex: Male
  Weight: 180 kg

DRUGS (1)
  1. CC-5013 (LENALIDOMIDE) (25 MILLIGRAM, CAPSULES) [Suspect]
     Indication: NON-HODGKIN'S LYMPHOMA
     Dosage: 25 MG, DAYS 1-21 EVERY 28 DAYS, ORAL
     Route: 048
     Dates: start: 20071231, end: 20080102

REACTIONS (3)
  - ASTHENIA [None]
  - DYSPNOEA [None]
  - HYPOTENSION [None]
